FAERS Safety Report 5929279-1 (Version None)
Quarter: 2008Q4

REPORT INFORMATION
  Report Type: 
  Country: None (occurrence: None)
  Receive Date: 20081023
  Receipt Date: 20081023
  Transmission Date: 20090506
  Serious: Yes (Other)
  Sender: FDA-Public Use
  Company Number: None

PATIENT
  Age: 37 Year
  Sex: Female
  Weight: 72.5755 kg

DRUGS (2)
  1. LAMOTRIGINE [Suspect]
     Indication: ANXIETY
     Dosage: 200MSG TWICE A DAY PO
     Route: 048
     Dates: start: 20080927, end: 20080929
  2. LAMOTRIGINE [Suspect]
     Indication: DEPRESSION
     Dosage: 200MSG TWICE A DAY PO
     Route: 048
     Dates: start: 20080927, end: 20080929

REACTIONS (4)
  - ANXIETY [None]
  - ENERGY INCREASED [None]
  - PANIC ATTACK [None]
  - PRODUCT QUALITY ISSUE [None]
